FAERS Safety Report 11185277 (Version 1)
Quarter: 2015Q2

REPORT INFORMATION
  Report Type: Spontaneous
  Country: US (occurrence: US)
  Receive Date: 20150612
  Receipt Date: 20150612
  Transmission Date: 20150821
  Serious: No
  Sender: FDA-Public Use
  Company Number: US-SA-2015SA057239

PATIENT
  Age: 43 Year
  Sex: Female

DRUGS (2)
  1. TOUJEO [Suspect]
     Active Substance: INSULIN GLARGINE
     Indication: DIABETES MELLITUS
     Route: 065
  2. SOLOSTAR U300 [Concomitant]
     Indication: DIABETES MELLITUS

REACTIONS (2)
  - Injection site pruritus [Unknown]
  - Injection site irritation [Unknown]

NARRATIVE: CASE EVENT DATE: 20150411
